FAERS Safety Report 8255427-7 (Version None)
Quarter: 2012Q2

REPORT INFORMATION
  Report Type: 
  Country: None (occurrence: None)
  Receive Date: 20120403
  Receipt Date: 20120328
  Transmission Date: 20120825
  Serious: Yes (Life-Threatening)
  Sender: FDA-Public Use
  Company Number: NL-ELI_LILLY_AND_COMPANY-NL201203009344

PATIENT
  Sex: Female

DRUGS (9)
  1. LISINOPRIL [Concomitant]
     Indication: ANGIOTENSIN CONVERTING ENZYME INCREASED
     Dosage: 10 MG, QD
     Route: 048
  2. SIMVASTATIN [Concomitant]
     Indication: BLOOD CHOLESTEROL INCREASED
     Dosage: 40 MG, QD
     Route: 048
  3. FORTEO [Suspect]
     Indication: OSTEOPOROSIS
     Dosage: 20 UG, QD
     Route: 058
     Dates: start: 20101122
  4. ASPIRIN [Concomitant]
     Indication: ANTICOAGULANT THERAPY
     Dosage: 80 MG, QD
     Route: 048
  5. NIFEDIPINE [Concomitant]
     Indication: HYPERTENSION
     Dosage: 60 MG, QD
     Route: 048
  6. PANTOPRAZOLE [Concomitant]
     Indication: PEPTIC ULCER
     Dosage: 40 MG, QD
     Route: 048
  7. PLAVIX [Concomitant]
     Indication: ANTICOAGULANT THERAPY
     Dosage: 75 MG, QD
     Route: 048
  8. METOPROLOL TARTRATE [Concomitant]
     Indication: ANGINA PECTORIS
     Dosage: 200 MG, QD
     Route: 048
  9. NITROGLYCERIN SPRAY [Concomitant]
     Indication: ANGINA PECTORIS
     Dosage: UNK, PRN

REACTIONS (2)
  - PAIN IN EXTREMITY [None]
  - CARDIAC FAILURE [None]
